FAERS Safety Report 5672367-8 (Version None)
Quarter: 2008Q1

REPORT INFORMATION
  Report Type: 
  Country: None (occurrence: None)
  Receive Date: 20080317
  Receipt Date: 20080229
  Transmission Date: 20080703
  Serious: Yes (Other)
  Sender: FDA-Public Use
  Company Number: ACO_00446_2008

PATIENT
  Age: 51 Year
  Sex: Female
  Weight: 90.7194 kg

DRUGS (5)
  1. ZANAFLEX [Suspect]
     Indication: MUSCLE SPASMS
     Dosage: 9 MG QID ORAL, (UP TO 50 MG DAILY (NOT THE PRESCRIBED AMOUNT) ORAL
     Route: 048
     Dates: start: 20020101
  2. ZANAFLEX [Suspect]
     Indication: MUSCLE SPASMS
     Dosage: 9 MG QID ORAL, (UP TO 50 MG DAILY (NOT THE PRESCRIBED AMOUNT) ORAL
     Route: 048
     Dates: start: 20070201
  3. METHADON HCL TAB [Concomitant]
  4. ANTIHYPERTENSIVES [Concomitant]
  5. INSULIN [Concomitant]

REACTIONS (4)
  - DRUG DEPENDENCE [None]
  - FEELING JITTERY [None]
  - HEART RATE INCREASED [None]
  - WITHDRAWAL SYNDROME [None]
